FAERS Safety Report 8836455 (Version 1)
Quarter: 2012Q4

REPORT INFORMATION
  Report Type: 
  Country: US (occurrence: US)
  Receive Date: 20121011
  Receipt Date: 20121011
  Transmission Date: 20130627
  Serious: No
  Sender: FDA-Public Use
  Company Number: US-ASTRAZENECA-2011SE68391

PATIENT
  Age: 52 Year
  Sex: Female
  Weight: 65.3 kg

DRUGS (7)
  1. SEROQUEL XR [Suspect]
     Indication: BIPOLAR DISORDER
     Route: 048
  2. SEROQUEL XR [Suspect]
     Indication: BIPOLAR DISORDER
     Route: 048
     Dates: end: 2012
  3. DEPAKOTE [Concomitant]
     Indication: BIPOLAR DISORDER
  4. THYROID PILL [Concomitant]
     Indication: HYPOTHYROIDISM
  5. XANAX [Concomitant]
     Indication: ANXIETY
  6. TRAZADONE [Concomitant]
     Indication: SLEEP DISORDER
  7. CELEXA [Concomitant]
     Indication: DEPRESSION

REACTIONS (6)
  - Bipolar disorder [Unknown]
  - Mania [Unknown]
  - Panic attack [Unknown]
  - Hypersomnia [Unknown]
  - Weight increased [Recovered/Resolved]
  - Drug dose omission [Unknown]
